FAERS Safety Report 6742785-5 (Version None)
Quarter: 2010Q2

REPORT INFORMATION
  Report Type: 
  Country: None (occurrence: None)
  Receive Date: 20100525
  Receipt Date: 20100510
  Transmission Date: 20101027
  Serious: Yes (Hospitalization, Other)
  Sender: FDA-Public Use
  Company Number: JPI-P-010691

PATIENT
  Age: 43 Year
  Sex: Female
  Weight: 74.8435 kg

DRUGS (3)
  1. XYREM       MG/ML- SODIUM OXYBATE) [Suspect]
     Indication: NARCOLEPSY
     Dosage: 2.5 TO 3 GM TWICE NIGHTLY, ORAL, 2.5 TO 3 GM ONCE, ORAL
     Route: 048
     Dates: start: 20080101, end: 20100505
  2. XYREM       MG/ML- SODIUM OXYBATE) [Suspect]
     Indication: NARCOLEPSY
     Dosage: 2.5 TO 3 GM TWICE NIGHTLY, ORAL, 2.5 TO 3 GM ONCE, ORAL
     Route: 048
     Dates: start: 20100506, end: 20100506
  3. ARMODAFINIL [Concomitant]

REACTIONS (1)
  - OVARIAN DISORDER [None]
